FAERS Safety Report 8257543-2 (Version None)
Quarter: 2012Q2

REPORT INFORMATION
  Report Type: 
  Country: None (occurrence: None)
  Receive Date: 20120403
  Receipt Date: 20120308
  Transmission Date: 20120825
  Serious: Yes (Disabling, Other)
  Sender: FDA-Public Use
  Company Number: CZ-B.I. PHARMACEUTICALS,INC./RIDGEFIELD-2012-AP-00200AP

PATIENT
  Sex: Female

DRUGS (3)
  1. MICARDIS [Suspect]
     Indication: HYPERTENSION
     Dosage: 40 MG
     Route: 048
     Dates: start: 20120214
  2. CONCOR 2.5MG [Concomitant]
     Indication: HYPERTENSION
     Dosage: 2.5 MG
  3. MICARDIS HCT [Suspect]
     Indication: HYPERTENSION
     Dosage: 80/12.5 MG - 1 TABLET PER DAY

REACTIONS (4)
  - BACK PAIN [None]
  - MYALGIA [None]
  - MUSCLE SPASMS [None]
  - NECK PAIN [None]
